APPROVED DRUG PRODUCT: SYNKAYVITE
Active Ingredient: MENADIOL SODIUM DIPHOSPHATE
Strength: 5MG
Dosage Form/Route: TABLET;ORAL
Application: N003718 | Product #010
Applicant: HOFFMANN LA ROCHE INC
Approved: Approved Prior to Jan 1, 1982 | RLD: No | RS: No | Type: DISCN